FAERS Safety Report 6292280-5 (Version None)
Quarter: 2009Q3

REPORT INFORMATION
  Report Type: 
  Country: None (occurrence: None)
  Receive Date: 20090731
  Receipt Date: 20090719
  Transmission Date: 20100115
  Serious: Yes (Other)
  Sender: FDA-Public Use
  Company Number: US-ROCHE-641601

PATIENT
  Sex: Female

DRUGS (4)
  1. PEGASYS [Suspect]
     Indication: HEPATITIS C
     Dosage: FORM: PRE-FILLED SYRINGE.
     Route: 065
     Dates: start: 20090618
  2. RIBAVIRIN [Suspect]
     Indication: HEPATITIS C
     Dosage: PATIENT TOOK 2 PILLS IN MORNING AND 4 HR LATER IN AFTERNOON TOOK HER EVENING DOSE
     Route: 065
  3. RIBAVIRIN [Suspect]
     Dosage: DIVIDED DOSES.
     Route: 065
     Dates: start: 20090618
  4. RIBAVIRIN [Suspect]
     Dosage: FORM PILL
     Route: 065
     Dates: start: 20090712

REACTIONS (7)
  - CHILLS [None]
  - CONVULSION [None]
  - DYSARTHRIA [None]
  - GAIT DISTURBANCE [None]
  - NAUSEA [None]
  - OVERDOSE [None]
  - VOMITING [None]
